FAERS Safety Report 9175266 (Version 1)
Quarter: 2013Q1

REPORT INFORMATION
  Report Type: Spontaneous
  Country: US (occurrence: US)
  Receive Date: 20130320
  Receipt Date: 20130320
  Transmission Date: 20140127
  Serious: No
  Sender: FDA-Public Use
  Company Number: US-ASTRAZENECA-2013SE14496

PATIENT
  Age: 93 Year
  Sex: Male
  Weight: 72.6 kg

DRUGS (7)
  1. SYMBICORT [Suspect]
     Indication: CHRONIC OBSTRUCTIVE PULMONARY DISEASE
     Dosage: 160/4.5 MCG, TWO PUFFS TWO TIMES A DAY
     Route: 055
  2. SYMBICORT [Suspect]
     Indication: CHRONIC OBSTRUCTIVE PULMONARY DISEASE
     Dosage: 160/4.5 MCG, TWO PUFFS ONCE DAILY
     Route: 055
  3. ALLOPURINOL [Concomitant]
     Indication: GOUT
     Dosage: BID
     Route: 048
     Dates: start: 1984
  4. ALBUTEROL [Concomitant]
     Indication: CHRONIC OBSTRUCTIVE PULMONARY DISEASE
     Dosage: 1 TREATMENT TID
     Route: 048
     Dates: start: 2004
  5. METFORMIN [Concomitant]
     Indication: DIABETES MELLITUS
     Route: 048
     Dates: start: 2004
  6. GLIMEPIRIDE [Concomitant]
     Indication: DIABETES MELLITUS
     Route: 048
     Dates: start: 2004
  7. ASPIRIN [Concomitant]
     Route: 048
     Dates: start: 1984

REACTIONS (4)
  - Vision blurred [Unknown]
  - Diplopia [Unknown]
  - Dry eye [Unknown]
  - Intentional drug misuse [Unknown]
